FAERS Safety Report 7967008-0 (Version None)
Quarter: 2011Q4

REPORT INFORMATION
  Report Type: 
  Country: None (occurrence: None)
  Receive Date: 20111207
  Receipt Date: 20111207
  Transmission Date: 20120403
  Serious: No
  Sender: FDA-Public Use
  Company Number: None

PATIENT
  Age: 61 Year
  Sex: Male
  Weight: 117 kg

DRUGS (2)
  1. QUETIAPINE [Suspect]
     Indication: SCHIZOAFFECTIVE DISORDER
  2. ZIPRASIDONE HYDROCHLORIDE [Suspect]
     Indication: SCHIZOAFFECTIVE DISORDER

REACTIONS (1)
  - ADVERSE EVENT [None]
